FAERS Safety Report 22047554 (Version 1)
Quarter: 2023Q1

REPORT INFORMATION
  Report Type: Other
  Country: FR (occurrence: FR)
  Receive Date: 20230301
  Receipt Date: 20230301
  Transmission Date: 20230418
  Serious: Yes (Life-Threatening)
  Sender: FDA-Public Use
  Company Number: None

PATIENT

DRUGS (4)
  1. ESOMEPRAZOLE [Suspect]
     Active Substance: ESOMEPRAZOLE
     Indication: Intentional overdose
     Dosage: 560 MILLIGRAM, 1 TOTAL
     Route: 048
     Dates: start: 20210821, end: 20210821
  2. ALPRAZOLAM [Suspect]
     Active Substance: ALPRAZOLAM
     Indication: Intentional overdose
     Dosage: 7.5 MILLIGRAM, 1 TOTAL
     Route: 048
     Dates: start: 20210821, end: 20210821
  3. DESLORATADINE [Suspect]
     Active Substance: DESLORATADINE
     Indication: Intentional overdose
     Dosage: 150 MILLIGRAM, 1 TOTAL
     Route: 048
     Dates: start: 20210821, end: 20210821
  4. PREDNISOLONE SODIUM METAZOATE [Suspect]
     Active Substance: PREDNISOLONE SODIUM METAZOATE
     Indication: Intentional overdose
     Dosage: 50 MILLIGRAM, 1 TOTAL
     Route: 048
     Dates: start: 20210821, end: 20210821

REACTIONS (2)
  - Coma [Unknown]
  - Intentional overdose [Recovered/Resolved]

NARRATIVE: CASE EVENT DATE: 20210821
